FAERS Safety Report 11420247 (Version 2)
Quarter: 2015Q3

REPORT INFORMATION
  Report Type: Spontaneous
  Country: DE (occurrence: DE)
  Receive Date: 20150826
  Receipt Date: 20150922
  Transmission Date: 20151125
  Serious: Yes (Other)
  Sender: FDA-Public Use
  Company Number: DE-JNJFOC-20150819054

PATIENT
  Age: 72 Year
  Sex: Male

DRUGS (4)
  1. LINSEED OIL [Concomitant]
     Active Substance: LINSEED OIL
     Route: 065
  2. CLEXANE [Interacting]
     Active Substance: ENOXAPARIN SODIUM
     Indication: PRODUCT USED FOR UNKNOWN INDICATION
     Route: 065
  3. XARELTO [Suspect]
     Active Substance: RIVAROXABAN
     Indication: ATRIAL FIBRILLATION
     Route: 048
     Dates: start: 2013
  4. XARELTO [Suspect]
     Active Substance: RIVAROXABAN
     Indication: CEREBROVASCULAR ACCIDENT PROPHYLAXIS
     Route: 048
     Dates: start: 2013

REACTIONS (4)
  - Renal impairment [Unknown]
  - Drug interaction [Unknown]
  - Post procedural haemorrhage [Unknown]
  - Labelled drug-drug interaction medication error [Unknown]
